FAERS Safety Report 13094883 (Version 3)
Quarter: 2018Q4

REPORT INFORMATION
  Report Type: Spontaneous
  Country: US (occurrence: US)
  Receive Date: 20170106
  Receipt Date: 20181223
  Transmission Date: 20190204
  Serious: Yes (Hospitalization, Other)
  Sender: FDA-Public Use
  Company Number: US-009507513-1612USA010888

PATIENT
  Age: 53 Year
  Sex: Male

DRUGS (14)
  1. ZOCOR [Concomitant]
     Active Substance: SIMVASTATIN
     Indication: BLOOD CHOLESTEROL INCREASED
     Dosage: 40 MG, 1 IN 1 D
     Route: 048
     Dates: start: 2016
  2. LOSARTAN. [Concomitant]
     Active Substance: LOSARTAN
     Indication: HYPERTENSION
     Dosage: 50 MG, QD
     Route: 048
  3. JANUMET [Suspect]
     Active Substance: METFORMIN HYDROCHLORIDE\SITAGLIPTIN PHOSPHATE
     Indication: DIABETES MELLITUS
     Dosage: 100/1000 MG, 2 IN 1 D
     Route: 048
     Dates: start: 201611
  4. NATURE^S CHOICE [Concomitant]
     Indication: ROUTINE HEALTH MAINTENANCE
     Dosage: 1 PILL DAILY, 1 IN 1 D
     Route: 048
     Dates: start: 2016
  5. VENCLEXTA [Suspect]
     Active Substance: VENETOCLAX
     Dosage: 50 MG DAILY DOSE, 1 IN 1 D
     Route: 048
     Dates: start: 20161004, end: 20161010
  6. GLIBOMET [Concomitant]
     Active Substance: GLYBURIDE\METFORMIN HYDROCHLORIDE
     Indication: DIABETES MELLITUS
     Dosage: 5/500 MG AS NEEDED - ONCE OR TWICE DAILY
     Route: 048
     Dates: start: 2006, end: 2016
  7. LATANOPROST. [Concomitant]
     Active Substance: LATANOPROST
     Indication: GLAUCOMA
     Dosage: 1 DROP, 1 IN 1 D
     Route: 047
  8. VALSARTAN. [Concomitant]
     Active Substance: VALSARTAN
     Indication: HYPERTENSION
     Dosage: 320 MG, DAILY DOSE
     Route: 048
     Dates: start: 201601
  9. VENCLEXTA [Suspect]
     Active Substance: VENETOCLAX
     Dosage: 400 MG DAILY DOSE, 1 IN 1 D
     Route: 048
     Dates: start: 20161025
  10. VITRON-C [Concomitant]
     Active Substance: ASCORBIC ACID\IRON
     Dosage: 65 MG, 2 IN 1 D
     Route: 048
     Dates: start: 201611
  11. NASACORT [Concomitant]
     Active Substance: TRIAMCINOLONE ACETONIDE
     Indication: PARANASAL SINUS HYPERSECRETION
     Dosage: UNK
  12. VENCLEXTA [Suspect]
     Active Substance: VENETOCLAX
     Indication: CHRONIC LYMPHOCYTIC LEUKAEMIA
     Dosage: 20 MG DAILY DOSE, 1 IN 1 D
     Route: 048
     Dates: start: 20160927, end: 20161003
  13. VENCLEXTA [Suspect]
     Active Substance: VENETOCLAX
     Dosage: 100 MG DAILY DOSE, 1 IN 1 D
     Route: 048
     Dates: start: 20161011, end: 20161017
  14. VENCLEXTA [Suspect]
     Active Substance: VENETOCLAX
     Dosage: 200 MG DAILY DOSE, 1 IN 1 D
     Route: 048
     Dates: start: 20161018, end: 20161024

REACTIONS (10)
  - Poor quality sleep [Unknown]
  - Fatigue [Not Recovered/Not Resolved]
  - Cough [Not Recovered/Not Resolved]
  - Food intolerance [Unknown]
  - Productive cough [Not Recovered/Not Resolved]
  - Diarrhoea [Recovered/Resolved]
  - Peripheral arterial occlusive disease [Unknown]
  - Nasopharyngitis [Not Recovered/Not Resolved]
  - Memory impairment [Not Recovered/Not Resolved]
  - Paranasal sinus discomfort [Not Recovered/Not Resolved]

NARRATIVE: CASE EVENT DATE: 20161116
